FAERS Safety Report 4752535-X (Version None)
Quarter: 2005Q3

REPORT INFORMATION
  Report Type: 
  Country: None (occurrence: None)
  Receive Date: 20050823
  Receipt Date: 20050811
  Transmission Date: 20060218
  Serious: Yes (Other)
  Sender: FDA-Public Use
  Company Number: 2005114834

PATIENT
  Age: 50 Year
  Sex: Male

DRUGS (3)
  1. DOXAZOSIN MESYLATE [Suspect]
     Indication: ILL-DEFINED DISORDER
     Dosage: ORAL
     Route: 048
  2. EPOGEN [Suspect]
     Indication: ILL-DEFINED DISORDER
     Dosage: INTRAVENOUS
     Route: 042
  3. FUTHAN (NAFAMOSTAT MESYLATE) [Suspect]

REACTIONS (4)
  - DIALYSIS [None]
  - EOSINOPHIL COUNT INCREASED [None]
  - PROCEDURAL COMPLICATION [None]
  - SHOCK [None]
